FAERS Safety Report 5371943-X (Version None)
Quarter: 2007Q2

REPORT INFORMATION
  Report Type: 
  Country: None (occurrence: None)
  Receive Date: 20070627
  Receipt Date: 20070621
  Transmission Date: 20071010
  Serious: Yes (Hospitalization, Other)
  Sender: FDA-Public Use
  Company Number: CL-SANOFI-SYNTHELABO-D01200703828

PATIENT
  Sex: Female
  Weight: 74 kg

DRUGS (11)
  1. NIFEDIPINE [Concomitant]
     Route: 048
  2. HEPARIN [Concomitant]
     Dates: start: 20070523, end: 20070523
  3. DEXAMETHASONE 0.5MG TAB [Concomitant]
     Route: 042
     Dates: start: 20070523, end: 20070523
  4. CHLORPHENIRAMINE MALEATE [Concomitant]
     Route: 042
     Dates: start: 20060523, end: 20070523
  5. ONDANSETRON [Concomitant]
     Route: 042
     Dates: start: 20070523, end: 20070523
  6. FAMOTIDINE [Concomitant]
     Route: 048
  7. FAMOTIDINE [Concomitant]
     Route: 042
     Dates: start: 20070523, end: 20070523
  8. LEUCOVORIN CALCIUM [Suspect]
     Route: 042
     Dates: start: 20070606, end: 20070606
  9. FLUOROURACIL [Suspect]
     Dosage: 400 MG/M?, IV BOLUS D1+D2 FOLLOWED BY 5-FU 2400 MG/M? OVER 46-HOUR CONTINUOUS INFUSION.
     Route: 042
     Dates: start: 20070606, end: 20070606
  10. OXALIPLATIN [Suspect]
     Route: 042
     Dates: start: 20070606, end: 20070606
  11. SR57746 OR PLACEBO [Suspect]
     Indication: NEUROLOGICAL SYMPTOM
     Route: 048
     Dates: start: 20070104, end: 20070606

REACTIONS (1)
  - SYNCOPE VASOVAGAL [None]
